FAERS Safety Report 12964416 (Version 1)
Quarter: 2016Q4

REPORT INFORMATION
  Report Type: Spontaneous
  Country: IT (occurrence: IT)
  Receive Date: 20161122
  Receipt Date: 20161122
  Transmission Date: 20170207
  Serious: Yes (Other)
  Sender: FDA-Public Use
  Company Number: IT-ELI_LILLY_AND_COMPANY-IT201611005706

PATIENT
  Age: 65 Year
  Sex: Male
  Weight: 89 kg

DRUGS (5)
  1. ERBITUX [Suspect]
     Active Substance: CETUXIMAB
     Indication: ADENOCARCINOMA OF COLON
     Dosage: 500 MG, CYCLICAL
     Route: 042
     Dates: start: 20160208
  2. IRINOTECAN HYDROCHLORIDE TRIHYDRATE [Suspect]
     Active Substance: IRINOTECAN HYDROCHLORIDE
     Indication: ADENOCARCINOMA OF COLON
     Dosage: 290 MG, CYCLICAL
     Route: 042
     Dates: start: 20160208
  3. LEVOFOLINIC ACID [Suspect]
     Active Substance: LEVOLEUCOVORIN
     Indication: ADENOCARCINOMA OF COLON
     Dosage: 320 MG, UNKNOWN
     Route: 042
     Dates: start: 20160208
  4. FLUOROURACILE [Suspect]
     Active Substance: FLUOROURACIL
     Indication: ADENOCARCINOMA OF COLON
     Dosage: 640 MG, UNKNOWN
     Route: 040
     Dates: start: 20160208
  5. FLUOROURACILE [Suspect]
     Active Substance: FLUOROURACIL
     Dosage: 3800 MG, CYCLICAL
     Route: 042
     Dates: start: 20160208

REACTIONS (1)
  - Thrombocytopenia [Recovering/Resolving]

NARRATIVE: CASE EVENT DATE: 20160426
